FAERS Safety Report 5937134-6 (Version None)
Quarter: 2008Q4

REPORT INFORMATION
  Report Type: 
  Country: None (occurrence: None)
  Receive Date: 20081031
  Receipt Date: 20081024
  Transmission Date: 20090506
  Serious: Yes (Hospitalization, Other)
  Sender: FDA-Public Use
  Company Number: PHHY2008FR26128

PATIENT
  Sex: Male

DRUGS (9)
  1. COMTAN [Suspect]
     Dosage: 200 MG DAILY
     Route: 048
     Dates: start: 20080612
  2. COMTAN [Suspect]
     Dosage: 200 MG, BID
     Route: 048
     Dates: start: 20080617, end: 20080619
  3. INDAPAMIDE [Concomitant]
     Dosage: 2 MG/0.625 MG ONCE DAILY
     Route: 048
     Dates: end: 20080601
  4. MADOPAR [Concomitant]
     Dosage: 687.5 MG DAILY
     Route: 048
  5. CORDARONE [Concomitant]
     Dosage: 200 MG, BID
     Route: 048
     Dates: start: 20080601
  6. CALDINE [Concomitant]
     Dosage: 4 MG, QD
     Dates: end: 20080601
  7. PREVISCAN [Concomitant]
  8. CARDENSIEL [Concomitant]
  9. TAHOR [Concomitant]

REACTIONS (9)
  - ARRHYTHMIA [None]
  - ASPARTATE AMINOTRANSFERASE INCREASED [None]
  - ATRIAL FIBRILLATION [None]
  - BLADDER DISTENSION [None]
  - CREATININE RENAL CLEARANCE DECREASED [None]
  - FALL [None]
  - HALLUCINATION [None]
  - POLYURIA [None]
  - TREMOR [None]
